FAERS Safety Report 19589430 (Version 1)
Quarter: 2021Q3

REPORT INFORMATION
  Report Type: Spontaneous
  Country: US (occurrence: US)
  Receive Date: 20210721
  Receipt Date: 20210721
  Transmission Date: 20211014
  Serious: No
  Sender: FDA-Public Use
  Company Number: US-ASTRAZENECA-2021A569682

PATIENT
  Sex: Female
  Weight: 45.4 kg

DRUGS (3)
  1. SYMBICORT [Suspect]
     Active Substance: BUDESONIDE\FORMOTEROL FUMARATE DIHYDRATE
     Indication: CHRONIC OBSTRUCTIVE PULMONARY DISEASE
     Dosage: 160/4.5MCG 2 PUFFS TWICE A DAY, ALTERNATING
     Route: 055
     Dates: end: 20210624
  2. SYMBICORT [Suspect]
     Active Substance: BUDESONIDE\FORMOTEROL FUMARATE DIHYDRATE
     Indication: EMPHYSEMA
     Dosage: 160/4.5MCG 2 PUFFS TWICE A DAY, ALTERNATING
     Route: 055
     Dates: end: 20210624
  3. BREZTRI AEROSPHERE [Suspect]
     Active Substance: BUDESONIDE\FORMOTEROL\GLYCOPYRRONIUM
     Dosage: 160/9/4.8MCG 2 PUFFS TWICE A DAY
     Route: 055
     Dates: start: 202105

REACTIONS (7)
  - Rhinorrhoea [Not Recovered/Not Resolved]
  - Palpitations [Unknown]
  - Product use issue [Unknown]
  - Panic disorder [Unknown]
  - Hypoaesthesia [Not Recovered/Not Resolved]
  - Anaemia [Unknown]
  - Contusion [Not Recovered/Not Resolved]
